FAERS Safety Report 7638424-1 (Version None)
Quarter: 2011Q3

REPORT INFORMATION
  Report Type: 
  Country: None (occurrence: None)
  Receive Date: 20110720
  Receipt Date: 20110713
  Transmission Date: 20111222
  Serious: Yes (Hospitalization)
  Sender: FDA-Public Use
  Company Number: 2011SP023768

PATIENT
  Age: 60 Year
  Sex: Female

DRUGS (11)
  1. AVASTIN [Concomitant]
  2. PANTOPRAZOLE [Concomitant]
  3. MOTILIUM [Concomitant]
  4. ZOFRAN [Concomitant]
  5. BACTRIM [Concomitant]
  6. FAMCICLOVIR [Concomitant]
  7. TEMODAL [Suspect]
     Indication: GLIOBLASTOMA MULTIFORME
     Dosage: 140 MG, QD
     Dates: start: 20110503
  8. COLOXYL WITHSENNA [Concomitant]
  9. DILANTIN [Concomitant]
  10. DEXAMETHASONE [Concomitant]
  11. ONDANSETRON [Concomitant]

REACTIONS (8)
  - HYPOKINESIA [None]
  - SWELLING [None]
  - PARAESTHESIA [None]
  - VOMITING [None]
  - CONSTIPATION [None]
  - CONVULSION [None]
  - DYSARTHRIA [None]
  - NEOPLASM PROGRESSION [None]
